FAERS Safety Report 17164436 (Version 1)
Quarter: 2019Q4

REPORT INFORMATION
  Report Type: Spontaneous
  Country: US (occurrence: US)
  Receive Date: 20191217
  Receipt Date: 20191217
  Transmission Date: 20200122
  Serious: No
  Sender: FDA-Public Use
  Company Number: US-HORIZON-ACT-0340-2019

PATIENT
  Age: 25 Year
  Sex: Male

DRUGS (1)
  1. ACTIMMUNE [Suspect]
     Active Substance: INTERFERON GAMMA-1B
     Indication: CHRONIC GRANULOMATOUS DISEASE
     Dosage: 100?G

REACTIONS (4)
  - Nausea [Unknown]
  - Lack of injection site rotation [Unknown]
  - Chills [Unknown]
  - Pyrexia [Unknown]
